FAERS Safety Report 10712756 (Version 1)
Quarter: 2015Q1

REPORT INFORMATION
  Report Type: Spontaneous
  Country: US (occurrence: None)
  Receive Date: 20150113
  Receipt Date: 20150113
  Transmission Date: 20150721
  Serious: Yes (Other)
  Sender: FDA-Public Use
  Company Number: US2015000729

PATIENT
  Sex: Male

DRUGS (3)
  1. BIOTENE MOISTURIZING MOUTH SPRAY [Suspect]
     Active Substance: CETYLPYRIDINIUM CHLORIDE
     Route: 004
  2. BIOTENE PBF [Suspect]
     Active Substance: SODIUM FLUORIDE
     Route: 004
  3. BIOTENE [Suspect]
     Active Substance: SODIUM MONOFLUOROPHOSPHATE
     Route: 004

REACTIONS (1)
  - Neoplasm malignant [None]
